FAERS Safety Report 22664317 (Version 2)
Quarter: 2024Q4

REPORT INFORMATION
  Report Type: Spontaneous
  Country: US (occurrence: US)
  Receive Date: 20230703
  Receipt Date: 20241230
  Transmission Date: 20250114
  Serious: No
  Sender: PFIZER
  Company Number: US-PFIZER INC-PV202300112978

PATIENT
  Age: 79 Year
  Sex: Female

DRUGS (2)
  1. IBRANCE [Suspect]
     Active Substance: PALBOCICLIB
     Dosage: 100 MG
  2. IBRANCE [Suspect]
     Active Substance: PALBOCICLIB
     Dosage: 125 MG, CYCLIC (125 MG ON DAY 1-21 OF A 28-DAY CYCLE, WITH OR WITHOUT FOOD, PALBOCICLIB 100 MG TAB)
     Route: 048

REACTIONS (2)
  - Confusional state [Unknown]
  - Product prescribing error [Unknown]
